FAERS Safety Report 23445806 (Version 2)
Quarter: 2024Q1

REPORT INFORMATION
  Report Type: Spontaneous
  Country: US (occurrence: US)
  Receive Date: 20240126
  Receipt Date: 20240212
  Transmission Date: 20240410
  Serious: Yes (Hospitalization, Other)
  Sender: FDA-Public Use
  Company Number: US-HIKMA PHARMACEUTICALS USA INC.-US-H14001-24-00493

PATIENT
  Age: 63 Year
  Sex: Female

DRUGS (4)
  1. REGADENOSON [Suspect]
     Active Substance: REGADENOSON
     Indication: Cardiac stress test
     Dosage: 0.4 MILLIGRAM, ONCE
     Route: 042
     Dates: start: 20240111
  2. AMINOPHYLLINE IV FRESENIUS [Concomitant]
     Indication: Product used for unknown indication
     Dosage: 50 MILLIGRAM
     Route: 042
  3. TECHNETIUM (99M TC) ALBUMIN DTPA [Concomitant]
     Indication: Product used for unknown indication
     Dosage: 10.2 MILLICURIE
     Route: 065
  4. TECHNETIUM (99M TC) ALBUMIN DTPA [Concomitant]
     Dosage: 32.8 MILLICURIE
     Route: 065

REACTIONS (3)
  - Cerebrovascular accident [Recovered/Resolved]
  - Hemiparesis [Recovered/Resolved]
  - Mutism [Recovered/Resolved]

NARRATIVE: CASE EVENT DATE: 20240111
